FAERS Safety Report 6254519-1 (Version None)
Quarter: 2009Q3

REPORT INFORMATION
  Report Type: 
  Country: None (occurrence: None)
  Receive Date: 20090702
  Receipt Date: 20090623
  Transmission Date: 20100115
  Serious: Yes (Other)
  Sender: FDA-Public Use
  Company Number: US-TYCO HEALTHCARE/MALLINCKRODT-T200901276

PATIENT

DRUGS (1)
  1. OPTIRAY 350 [Suspect]
     Dosage: UNK
     Route: 042

REACTIONS (1)
  - CARDIAC ARREST [None]
